FAERS Safety Report 22326032 (Version 1)
Quarter: 2023Q2

REPORT INFORMATION
  Report Type: Spontaneous
  Country: US (occurrence: US)
  Receive Date: 20230516
  Receipt Date: 20230516
  Transmission Date: 20230722
  Serious: No
  Sender: FDA-Public Use
  Company Number: US-BoehringerIngelheim-2023-BI-237347

PATIENT
  Age: 62 Year
  Sex: Male

DRUGS (1)
  1. MIRAPEX ER [Suspect]
     Active Substance: PRAMIPEXOLE DIHYDROCHLORIDE
     Indication: Restless legs syndrome
     Dosage: ER
     Dates: end: 202303

REACTIONS (2)
  - Drug ineffective [Recovering/Resolving]
  - Off label use [Unknown]
